FAERS Safety Report 4398007-6 (Version None)
Quarter: 2004Q3

REPORT INFORMATION
  Report Type: 
  Country: None (occurrence: None)
  Receive Date: 20040713
  Receipt Date: 20040630
  Transmission Date: 20050211
  Serious: Yes (Other)
  Sender: FDA-Public Use
  Company Number: DEU-2004-0000904

PATIENT
  Age: 68 Year
  Sex: Female

DRUGS (6)
  1. MORPHINE SULFATE INJ [Suspect]
     Indication: CANCER PAIN
     Dosage: 60 + 120 MG, Q4H, INTRAMUSCULAR
     Route: 030
     Dates: start: 19940528, end: 19930528
  2. MORPHINE SULFATE INJ [Suspect]
     Indication: CANCER PAIN
     Dosage: 60 + 120 MG, Q4H, INTRAMUSCULAR
     Route: 030
     Dates: start: 19930528, end: 19930529
  3. MORPHINE SULFATE [Suspect]
     Indication: CANCER PAIN
     Dosage: 60 + 100 MG DAILY
     Dates: end: 19930528
  4. MORPHINE SULFATE [Suspect]
     Indication: CANCER PAIN
     Dosage: 60 + 100 MG DAILY
     Dates: start: 19920901
  5. ACETAMINOPHEN [Concomitant]
  6. KETOBEMIDONE (KETOBEMIDONE) [Concomitant]

REACTIONS (1)
  - ALLODYNIA [None]
